FAERS Safety Report 26113643 (Version 1)
Quarter: 2025Q4

REPORT INFORMATION
  Report Type: Spontaneous
  Country: US (occurrence: None)
  Receive Date: 20251202
  Receipt Date: 20251202
  Transmission Date: 20260118
  Serious: No
  Sender: INCYTE
  Company Number: US-INCYTE CORPORATION-2025IN013197

PATIENT
  Age: 54 Year

DRUGS (1)
  1. JAKAFI [Suspect]
     Active Substance: RUXOLITINIB
     Indication: Product used for unknown indication
     Dosage: 10 MILLIGRAM, BID

REACTIONS (9)
  - Peripheral swelling [Unknown]
  - Paraesthesia [Unknown]
  - Food craving [Unknown]
  - Pruritus [Unknown]
  - Erythema [Unknown]
  - Weight increased [Unknown]
  - Headache [Unknown]
  - Dizziness [Unknown]
  - Fatigue [Unknown]
